FAERS Safety Report 12904546 (Version 1)
Quarter: 2016Q4

REPORT INFORMATION
  Report Type: Spontaneous
  Country: US (occurrence: US)
  Receive Date: 20161102
  Receipt Date: 20161102
  Transmission Date: 20170207
  Serious: Yes (Other)
  Sender: FDA-Public Use
  Company Number: US-BAYER-2016-205483

PATIENT
  Sex: Female

DRUGS (1)
  1. CIPRO [Suspect]
     Active Substance: CIPROFLOXACIN HYDROCHLORIDE
     Indication: URINARY TRACT INFECTION
     Dosage: UNK
     Route: 048
     Dates: start: 20150719

REACTIONS (6)
  - Pharyngeal inflammation [None]
  - Drug hypersensitivity [None]
  - Panic attack [None]
  - Dyspnoea [None]
  - Choking sensation [None]
  - Sensation of foreign body [None]

NARRATIVE: CASE EVENT DATE: 201507
